FAERS Safety Report 13165635 (Version 1)
Quarter: 2017Q1

REPORT INFORMATION
  Report Type: Spontaneous
  Country: US (occurrence: US)
  Receive Date: 20170131
  Receipt Date: 20170131
  Transmission Date: 20170428
  Serious: Yes (Other)
  Sender: FDA-Public Use
  Company Number: US-BAUSCH-BL-2017-001978

PATIENT
  Sex: Female

DRUGS (2)
  1. ESOTERICA NIGHTTIME WITH MOISTURIZERS [Suspect]
     Active Substance: HYDROQUINONE
     Indication: PRODUCT USED FOR UNKNOWN INDICATION
     Dosage: AS DIRECTED ONCE DAILY
     Route: 061
  2. ESOTERICA DAYTIME W/MOISTURIZERS [Suspect]
     Active Substance: HYDROQUINONE
     Indication: PRODUCT USED FOR UNKNOWN INDICATION
     Dosage: AS DIRECTED ONCE DAILY
     Route: 061

REACTIONS (3)
  - Urticaria [Not Recovered/Not Resolved]
  - Swelling [Not Recovered/Not Resolved]
  - Rotator cuff syndrome [Not Recovered/Not Resolved]
